FAERS Safety Report 8811118 (Version 6)
Quarter: 2013Q3

REPORT INFORMATION
  Report Type: Spontaneous
  Country: US (occurrence: US)
  Receive Date: 20120927
  Receipt Date: 20130920
  Transmission Date: 20140515
  Serious: Yes (Hospitalization, Other)
  Sender: FDA-Public Use
  Company Number: US-009507513-1209USA008797

PATIENT
  Sex: Female
  Weight: 65 kg

DRUGS (12)
  1. FOSAMAX [Suspect]
     Indication: OSTEOPOROSIS
     Dosage: 10 MG, QD
     Route: 048
     Dates: start: 199908, end: 199909
  2. FOSAMAX [Suspect]
     Indication: OSTEOPENIA
     Dosage: 5 MG,QD
     Route: 048
     Dates: start: 199909, end: 200007
  3. FOSAMAX [Suspect]
     Dosage: 70 MG, QW
     Route: 048
     Dates: start: 200204, end: 200712
  4. FOSAMAX PLUS D [Suspect]
     Indication: OSTEOPOROSIS
     Dosage: 70/2800 MG/IU
     Route: 048
     Dates: start: 200712, end: 200803
  5. ALENDRONATE SODIUM [Suspect]
     Indication: OSTEOPOROSIS
     Dosage: 70 MG, QW
     Route: 048
     Dates: start: 200803, end: 200809
  6. ACTONEL [Suspect]
     Indication: OSTEOPOROSIS
     Dosage: 5 MG, UNK
     Route: 048
     Dates: start: 200007, end: 200204
  7. ACTONEL [Suspect]
     Indication: OSTEOPENIA
  8. ALBUTEROL [Concomitant]
  9. PRILOSEC [Concomitant]
     Dosage: UNK
     Dates: start: 1980
  10. HORMONES (UNSPECIFIED) [Concomitant]
     Dosage: UNK
     Dates: start: 1970
  11. LOTREL [Concomitant]
     Indication: HYPERTENSION
     Dosage: UNK
     Dates: start: 1990
  12. EFFEXOR [Concomitant]
     Indication: DEPRESSION
     Dosage: UNK
     Dates: start: 1995

REACTIONS (22)
  - Internal fixation of fracture [Unknown]
  - Femur fracture [Unknown]
  - Fall [Unknown]
  - Fracture nonunion [Unknown]
  - Open reduction of fracture [Unknown]
  - Procedural haemorrhage [Unknown]
  - Open reduction of fracture [Unknown]
  - Transfusion [Unknown]
  - Removal of internal fixation [Unknown]
  - Humerus fracture [Unknown]
  - Open reduction of fracture [Unknown]
  - Femur fracture [Unknown]
  - Vitamin D deficiency [Unknown]
  - Low turnover osteopathy [Unknown]
  - Hormone replacement therapy [Unknown]
  - Hiatus hernia [Unknown]
  - Rhinitis allergic [Unknown]
  - Osteoporosis [Unknown]
  - Device failure [Unknown]
  - Parathyroid disorder [Unknown]
  - Body height decreased [Unknown]
  - Arthralgia [Unknown]
